FAERS Safety Report 12092149 (Version 4)
Quarter: 2016Q4

REPORT INFORMATION
  Report Type: Spontaneous
  Country: FI (occurrence: FI)
  Receive Date: 20160219
  Receipt Date: 20161221
  Transmission Date: 20170206
  Serious: Yes (Hospitalization, Other)
  Sender: FDA-Public Use
  Company Number: FI-ROCHE-1713486

PATIENT
  Age: 79 Year
  Sex: Male

DRUGS (18)
  1. NEUROBION FORTE [Concomitant]
     Active Substance: CYANOCOBALAMIN\PYRIDOXINE HYDROCHLORIDE\THIAMINE DISULFIDE
  2. NEULASTA [Concomitant]
     Active Substance: PEGFILGRASTIM
     Route: 058
     Dates: start: 20160524
  3. GAZYVARO [Suspect]
     Active Substance: OBINUTUZUMAB
     Dosage: CYCLE 1 DAY 8?DRUG INTERRUPTED ON 16/FEB/2016
     Route: 042
     Dates: start: 20160209, end: 20160216
  4. GAZYVARO [Suspect]
     Active Substance: OBINUTUZUMAB
     Route: 042
     Dates: start: 20160510, end: 20160510
  5. TAVEGYL [Concomitant]
     Active Substance: CLEMASTINE FUMARATE
     Indication: PREMEDICATION
     Route: 042
     Dates: start: 20160202, end: 20160202
  6. ZYRTEC [Concomitant]
     Active Substance: CETIRIZINE HYDROCHLORIDE
     Indication: PREMEDICATION
     Route: 048
     Dates: start: 20160314, end: 20160314
  7. LEUKERAN [Suspect]
     Active Substance: CHLORAMBUCIL
     Dosage: EVERY OTHER DAY
     Route: 048
     Dates: start: 20160510, end: 20160524
  8. COTRIM FORTE [Concomitant]
     Active Substance: SULFAMETHOXAZOLE\TRIMETHOPRIM
  9. SOLU-MEDROL [Concomitant]
     Active Substance: METHYLPREDNISOLONE SODIUM SUCCINATE
     Indication: PREMEDICATION
     Route: 042
     Dates: start: 20160202, end: 20160202
  10. GAZYVARO [Suspect]
     Active Substance: OBINUTUZUMAB
     Route: 042
     Dates: start: 20160314, end: 20160314
  11. LEUKERAN [Suspect]
     Active Substance: CHLORAMBUCIL
     Route: 048
     Dates: start: 20160314
  12. GAZYVARO [Suspect]
     Active Substance: OBINUTUZUMAB
     Dosage: CYCLE 1 DAY 2
     Route: 042
     Dates: start: 20160203
  13. PARA-TABS [Concomitant]
     Active Substance: ACETAMINOPHEN
     Route: 048
     Dates: start: 20160314, end: 20160314
  14. APURIN [Concomitant]
     Active Substance: ALLOPURINOL
  15. PARA-TABS [Concomitant]
     Active Substance: ACETAMINOPHEN
     Indication: PREMEDICATION
     Route: 048
     Dates: start: 20160202, end: 20160202
  16. GAZYVARO [Suspect]
     Active Substance: OBINUTUZUMAB
     Indication: CHRONIC LYMPHOCYTIC LEUKAEMIA
     Dosage: ADMINISTERED ON CYCLE DAYS ONE, TWO AND EIGHT.
     Route: 042
     Dates: start: 20160202
  17. GAZYVARO [Suspect]
     Active Substance: OBINUTUZUMAB
     Route: 042
     Dates: start: 20160412, end: 20160412
  18. LEUKERAN [Suspect]
     Active Substance: CHLORAMBUCIL
     Indication: CHRONIC LYMPHOCYTIC LEUKAEMIA
     Dosage: ADMINISTERED ON CYCLE 1 DAY ONE
     Route: 048
     Dates: start: 20160202, end: 20160202

REACTIONS (4)
  - Neutropenic infection [Recovered/Resolved]
  - Pancytopenia [Recovered/Resolved]
  - Neutropenia [Recovered/Resolved]
  - Infusion related reaction [Recovered/Resolved]

NARRATIVE: CASE EVENT DATE: 20160202
